FAERS Safety Report 5035055-7 (Version None)
Quarter: 2006Q2

REPORT INFORMATION
  Report Type: 
  Country: None (occurrence: None)
  Receive Date: 20060519
  Receipt Date: 20060324
  Transmission Date: 20061013
  Serious: No
  Sender: FDA-Public Use
  Company Number: TPA2006A00549

PATIENT
  Age: 86 Year
  Sex: Male
  Weight: 102.9665 kg

DRUGS (10)
  1. ROZEREM [Suspect]
     Indication: INSOMNIA
     Dosage: 8 MG, HS, PER ORAL
     Route: 048
     Dates: start: 20060314, end: 20060317
  2. MONOPRIL (FOSINOPRIL SODIUM) (10 MILLIGRAM) [Concomitant]
  3. TOPROL XL (METOPROLOL SUCCINATE) (25 MILLIGRAM, TABLETS) [Concomitant]
  4. HCTZ (HYDROCHLOROTHIAZIDE) (12.5 MILLIGRAM) [Concomitant]
  5. ZOCOR (SIMVASTATIN) (20 MILLIGRAM) [Concomitant]
  6. XANAX (ALPRAZOLAM) (0.5 MILLIGRAM) [Concomitant]
  7. LORTAB (PARACETAMOL, HYDROCODONE BITARTRATE) (10 MILLIGRAM) [Concomitant]
  8. CASODEX (BICALUTAMIDE) (50 MILLIGRAM) [Concomitant]
  9. PLAVIX (CLOPIDOGREL SULFATE) (75 MILLIGRAM) [Concomitant]
  10. AMITRIPTYLINE (AMITRIPTYLINE) (25 MILLIGRAM) [Concomitant]

REACTIONS (1)
  - THERAPEUTIC RESPONSE DECREASED [None]
